FAERS Safety Report 13502803 (Version 1)
Quarter: 2017Q2

REPORT INFORMATION
  Report Type: Spontaneous
  Country: JP (occurrence: JP)
  Receive Date: 20170502
  Receipt Date: 20170502
  Transmission Date: 20170830
  Serious: Yes (Other)
  Sender: FDA-Public Use
  Company Number: JP-VIIV HEALTHCARE LIMITED-JP2017JPN041010

PATIENT
  Age: 4 Decade
  Sex: Male

DRUGS (6)
  1. FAMOTIDINE. [Concomitant]
     Active Substance: FAMOTIDINE
     Dosage: UNK
  2. ATAZANAVIR SULFATE [Concomitant]
     Active Substance: ATAZANAVIR SULFATE
     Dosage: UNK
  3. RITONAVIR. [Concomitant]
     Active Substance: RITONAVIR
     Dosage: UNK
  4. TENOFOVIR DISOPROXIL FUMARATE. [Concomitant]
     Active Substance: TENOFOVIR DISOPROXIL FUMARATE
     Dosage: UNK
  5. TRIUMEQ [Suspect]
     Active Substance: ABACAVIR SULFATE\DOLUTEGRAVIR SODIUM\LAMIVUDINE
     Indication: HIV INFECTION
     Dosage: UNK
     Route: 048
     Dates: start: 20170303, end: 20170310
  6. EMTRICITABINE [Concomitant]
     Active Substance: EMTRICITABINE
     Dosage: UNK

REACTIONS (18)
  - Chest discomfort [Recovering/Resolving]
  - Insomnia [Recovering/Resolving]
  - Nausea [Recovered/Resolved]
  - Dyspnoea [Recovering/Resolving]
  - Anxiety [Recovering/Resolving]
  - Diarrhoea [Recovered/Resolved]
  - Feeling hot [Recovering/Resolving]
  - Erythema [Recovering/Resolving]
  - Musculoskeletal discomfort [Not Recovered/Not Resolved]
  - Vomiting [Recovered/Resolved]
  - Drug hypersensitivity [Recovering/Resolving]
  - Cough [Recovering/Resolving]
  - Malaise [Recovering/Resolving]
  - Face oedema [Recovered/Resolved]
  - Laryngeal oedema [Recovered/Resolved]
  - Abnormal dreams [Recovering/Resolving]
  - Arthralgia [Recovering/Resolving]
  - Feeling abnormal [Recovered/Resolved]

NARRATIVE: CASE EVENT DATE: 20170303
